FAERS Safety Report 8515181-8 (Version None)
Quarter: 2012Q3

REPORT INFORMATION
  Report Type: 
  Country: None (occurrence: None)
  Receive Date: 20120717
  Receipt Date: 20120706
  Transmission Date: 20120928
  Serious: Yes (Hospitalization)
  Sender: FDA-Public Use
  Company Number: JP-GLAXOSMITHKLINE-B0796956A

PATIENT
  Sex: Female
  Weight: 36 kg

DRUGS (6)
  1. MAGNESIUM OXIDE [Concomitant]
     Indication: CONSTIPATION
     Dosage: 1G PER DAY
     Route: 048
     Dates: start: 20090527
  2. VALTREX [Suspect]
     Indication: HERPES ZOSTER
     Dosage: 3000MG PER DAY
     Route: 048
     Dates: start: 20120409, end: 20120414
  3. SENNOSIDE [Concomitant]
     Indication: CONSTIPATION
     Dosage: 24MG PER DAY
     Route: 048
     Dates: start: 20090527
  4. MENEST [Concomitant]
     Indication: PARKINSON'S DISEASE
     Dosage: 200MG PER DAY
     Route: 048
     Dates: start: 20110624
  5. SORENTMIN [Concomitant]
     Indication: INSOMNIA
     Dosage: .25MG PER DAY
     Route: 048
     Dates: start: 20090527
  6. VOGLIBOSE [Concomitant]
     Indication: DIABETES MELLITUS
     Dosage: .6MG PER DAY
     Route: 048
     Dates: start: 20090527

REACTIONS (13)
  - DEHYDRATION [None]
  - RENAL DISORDER [None]
  - ATRIOVENTRICULAR BLOCK COMPLETE [None]
  - CONVULSION [None]
  - LOSS OF CONSCIOUSNESS [None]
  - VOMITING [None]
  - SOMNOLENCE [None]
  - GAZE PALSY [None]
  - BLOOD UREA ABNORMAL [None]
  - OVERDOSE [None]
  - BLOOD CREATININE ABNORMAL [None]
  - BLOOD POTASSIUM ABNORMAL [None]
  - DISORIENTATION [None]
